FAERS Safety Report 4325100-6 (Version None)
Quarter: 2004Q1

REPORT INFORMATION
  Report Type: 
  Country: None (occurrence: None)
  Receive Date: 20040323
  Receipt Date: 20040206
  Transmission Date: 20041129
  Serious: No
  Sender: FDA-Public Use
  Company Number: USA040157166

PATIENT
  Age: 62 Year
  Sex: Male
  Weight: 91 kg

DRUGS (1)
  1. CIALIS [Suspect]
     Indication: ERECTILE DYSFUNCTION
     Dosage: 20 MG/1 AS NEEDED
     Dates: start: 20040101

REACTIONS (4)
  - DRUG INEFFECTIVE [None]
  - INTENTIONAL OVERDOSE [None]
  - NASOPHARYNGITIS [None]
  - THERAPEUTIC RESPONSE DECREASED [None]
